FAERS Safety Report 5835348-7 (Version None)
Quarter: 2008Q3

REPORT INFORMATION
  Report Type: 
  Country: None (occurrence: None)
  Receive Date: 20080804
  Receipt Date: 20080723
  Transmission Date: 20090109
  Serious: Yes (Other)
  Sender: FDA-Public Use
  Company Number: 08H-163-0314644-00

PATIENT
  Age: 61 Year
  Sex: Female

DRUGS (4)
  1. VANCOMYCIN HYDROCHLORIDE [Suspect]
     Indication: WOUND INFECTION
     Dosage: INTRAVENOUS
     Route: 042
  2. LEVOFLOXACIN [Concomitant]
  3. METRONIDAZOLE [Concomitant]
  4. MEROPENEM (MEROPENEM) [Concomitant]

REACTIONS (1)
  - LINEAR IGA DISEASE [None]
